FAERS Safety Report 17620600 (Version 1)
Quarter: 2020Q2

REPORT INFORMATION
  Report Type: Spontaneous
  Country: US (occurrence: US)
  Receive Date: 20200403
  Receipt Date: 20200403
  Transmission Date: 20200713
  Serious: Yes (Other)
  Sender: FDA-Public Use
  Company Number: US-B.I. PHARMACEUTICALS,INC./RIDGEFIELD-2020-NB-017586

PATIENT
  Age: 60 Year
  Sex: Female

DRUGS (1)
  1. JARDIANCE [Suspect]
     Active Substance: EMPAGLIFLOZIN
     Indication: PRODUCT USED FOR UNKNOWN INDICATION
     Route: 065

REACTIONS (8)
  - Lactic acidosis [Unknown]
  - Portal venous gas [Unknown]
  - Acute kidney injury [Unknown]
  - Emphysematous pyelonephritis [Unknown]
  - Septic shock [Unknown]
  - Diabetes mellitus [Unknown]
  - Colitis ischaemic [Unknown]
  - Thrombocytopenia [Unknown]
